FAERS Safety Report 17408374 (Version 1)
Quarter: 2020Q1

REPORT INFORMATION
  Report Type: Spontaneous
  Country: AT (occurrence: AT)
  Receive Date: 20200212
  Receipt Date: 20200212
  Transmission Date: 20200409
  Serious: Yes (Other)
  Sender: FDA-Public Use
  Company Number: NVSC2020AT030972

PATIENT
  Age: 54 Year
  Sex: Female

DRUGS (1)
  1. CLAVAMOX 875 MG/125 MG - FILMTABLETTEN [Suspect]
     Active Substance: AMOXICILLIN\CLAVULANATE POTASSIUM
     Indication: ALLERGY TEST
     Dosage: 235 MG
     Route: 065
     Dates: start: 20191017, end: 20191017

REACTIONS (3)
  - Feeling hot [Recovered/Resolved]
  - Type I hypersensitivity [Recovered/Resolved]
  - Conjunctivitis [Recovered/Resolved]

NARRATIVE: CASE EVENT DATE: 20191017
